FAERS Safety Report 24847468 (Version 1)
Quarter: 2025Q1

REPORT INFORMATION
  Report Type: Spontaneous
  Country: US (occurrence: US)
  Receive Date: 20250116
  Receipt Date: 20250116
  Transmission Date: 20250409
  Serious: No
  Sender: ELI LILLY AND COMPANY
  Company Number: US-ELI_LILLY_AND_COMPANY-US202501007849

PATIENT
  Age: 29 Year
  Sex: Female

DRUGS (1)
  1. OLUMIANT [Suspect]
     Active Substance: BARICITINIB
     Indication: Alopecia universalis
     Dosage: 4 MG, DAILY
     Route: 048

REACTIONS (6)
  - Off label use [Unknown]
  - Product dose omission issue [Unknown]
  - Fatigue [Unknown]
  - Staphylococcal infection [Unknown]
  - Illness [Unknown]
  - Oral herpes [Unknown]
